FAERS Safety Report 8361840-X (Version None)
Quarter: 2012Q2

REPORT INFORMATION
  Report Type: 
  Country: None (occurrence: None)
  Receive Date: 20120515
  Receipt Date: 20120508
  Transmission Date: 20120825
  Serious: No
  Sender: FDA-Public Use
  Company Number: US-ASTRAZENECA-2012SE29799

PATIENT
  Sex: Male

DRUGS (2)
  1. SYMBICORT [Suspect]
     Dosage: 160/4.5 MCG, UNKNOWN FREQUENCY
     Route: 055
  2. ANTIHISTAMINE [Suspect]
     Route: 065

REACTIONS (2)
  - OCULAR HYPERAEMIA [None]
  - HYPERSENSITIVITY [None]
